FAERS Safety Report 21590027 (Version 7)
Quarter: 2023Q4

REPORT INFORMATION
  Report Type: Report from Study
  Country: CA (occurrence: CA)
  Receive Date: 20221114
  Receipt Date: 20231227
  Transmission Date: 20240110
  Serious: Yes (Hospitalization)
  Sender: FDA-Public Use
  Company Number: CA-JNJFOC-20221121250

PATIENT
  Age: 16 Year
  Sex: Female

DRUGS (3)
  1. REMICADE [Suspect]
     Active Substance: INFLIXIMAB
     Indication: Crohn^s disease
     Dosage: ON 08/NOV/2022, RECEIVED 2ND INFLIXIMAB, RECOMBINANT INFUSION OF 600 MG AND PARTIAL HARVEY-BRADSHAW
     Route: 042
     Dates: start: 20221024
  2. REMICADE [Suspect]
     Active Substance: INFLIXIMAB
     Route: 042
  3. CIPROFLOXACIN [Concomitant]
     Active Substance: CIPROFLOXACIN
     Indication: Product used for unknown indication
     Route: 065

REACTIONS (4)
  - Presyncope [Recovering/Resolving]
  - Crohn^s disease [Not Recovered/Not Resolved]
  - Weight increased [Unknown]
  - Drug level decreased [Unknown]

NARRATIVE: CASE EVENT DATE: 20221107
